FAERS Safety Report 18436149 (Version 1)
Quarter: 2020Q4

REPORT INFORMATION
  Report Type: Other
  Country: HU (occurrence: HU)
  Receive Date: 20201028
  Receipt Date: 20201028
  Transmission Date: 20210114
  Serious: Yes (Disabling, Other)
  Sender: FDA-Public Use
  Company Number: HU-VALIDUS PHARMACEUTICALS LLC-HU-2020VAL000848

PATIENT

DRUGS (25)
  1. CLAFORAN [Suspect]
     Active Substance: CEFOTAXIME SODIUM
     Indication: PRODUCT USED FOR UNKNOWN INDICATION
     Dosage: 1 G, Q12H
     Route: 065
     Dates: start: 20200117, end: 20200121
  2. CLAFORAN [Suspect]
     Active Substance: CEFOTAXIME SODIUM
     Dosage: 1 G, TOTAL
     Route: 065
     Dates: start: 20200117, end: 20200117
  3. PARACETAMOL [Suspect]
     Active Substance: ACETAMINOPHEN
     Indication: PREMEDICATION
     Dosage: 1 G, TOTAL
     Route: 065
     Dates: start: 20200117, end: 20200117
  4. BUPIVACAINE. [Suspect]
     Active Substance: BUPIVACAINE
     Indication: EPIDURAL ANAESTHESIA
     Dosage: UNK
     Route: 065
     Dates: start: 20200117, end: 20200117
  5. CONTROLOC [Suspect]
     Active Substance: PANTOPRAZOLE SODIUM
     Indication: PRODUCT USED FOR UNKNOWN INDICATION
     Dosage: 1 DF, BID
     Route: 065
     Dates: start: 20200117, end: 20200129
  6. CONTROLOC [Suspect]
     Active Substance: PANTOPRAZOLE SODIUM
     Dosage: 1 DF, BID
     Route: 065
     Dates: start: 20200128, end: 20200129
  7. ALGOPYRIN                          /06276704/ [Suspect]
     Active Substance: METAMIZOLE SODIUM
     Dosage: UNK
     Route: 065
     Dates: start: 20200120, end: 20200120
  8. ALPRAZOLAM. [Suspect]
     Active Substance: ALPRAZOLAM
     Indication: PRODUCT USED FOR UNKNOWN INDICATION
     Dosage: 0.25 MG, TOTAL
     Route: 065
     Dates: start: 20200117, end: 20200117
  9. METRONIDAZOLE. [Suspect]
     Active Substance: METRONIDAZOLE
     Dosage: UNK
     Route: 065
     Dates: start: 20200117, end: 20200127
  10. EPINEPHRINE. [Suspect]
     Active Substance: EPINEPHRINE
     Indication: PRODUCT USED FOR UNKNOWN INDICATION
     Dosage: UNK
     Route: 065
     Dates: start: 20200117, end: 20200117
  11. ONDANSETRON [Suspect]
     Active Substance: ONDANSETRON
     Indication: PRODUCT USED FOR UNKNOWN INDICATION
     Dosage: 4 MG, TOTAL
     Route: 065
     Dates: start: 20200117, end: 20200117
  12. ALGOPYRIN                          /06276704/ [Suspect]
     Active Substance: METAMIZOLE SODIUM
     Indication: PRODUCT USED FOR UNKNOWN INDICATION
     Dosage: 2 G, TOTAL
     Route: 065
     Dates: start: 20200117, end: 20200117
  13. SUFENTANIL [Suspect]
     Active Substance: SUFENTANIL
     Indication: PRODUCT USED FOR UNKNOWN INDICATION
     Dosage: 40 ?G, TOTAL
     Route: 065
     Dates: start: 20200117, end: 20200117
  14. FENTANYL. [Suspect]
     Active Substance: FENTANYL
     Indication: EPIDURAL ANAESTHESIA
     Dosage: UNK
     Route: 065
     Dates: start: 20200117, end: 20200117
  15. FENTANYL. [Suspect]
     Active Substance: FENTANYL
     Dosage: 2 ML, UNK
     Route: 065
     Dates: start: 20200119, end: 20200119
  16. SUPRAX [Suspect]
     Active Substance: CEFIXIME
     Indication: PRODUCT USED FOR UNKNOWN INDICATION
     Dosage: UNK
     Route: 065
     Dates: start: 20200122, end: 20200127
  17. PROPOFOL. [Suspect]
     Active Substance: PROPOFOL
     Indication: PRODUCT USED FOR UNKNOWN INDICATION
     Dosage: 250 MG, TOTAL
     Route: 065
     Dates: start: 20200117, end: 20200117
  18. TRAMADOL HYDROCHLORIDE. [Suspect]
     Active Substance: TRAMADOL HYDROCHLORIDE
     Indication: PRODUCT USED FOR UNKNOWN INDICATION
     Dosage: UNK
     Route: 065
     Dates: start: 20200120, end: 20200120
  19. BRIDION [Suspect]
     Active Substance: SUGAMMADEX
     Indication: PRODUCT USED FOR UNKNOWN INDICATION
     Dosage: 50 MG, TOTAL
     Route: 065
     Dates: start: 20200117, end: 20200117
  20. NO-SPA [Suspect]
     Active Substance: DROTAVERINE HYDROCHLORIDE
     Indication: PRODUCT USED FOR UNKNOWN INDICATION
     Dosage: UNK
     Route: 065
     Dates: start: 20200120, end: 20200120
  21. CLEXANE [Suspect]
     Active Substance: ENOXAPARIN SODIUM
     Indication: PRODUCT USED FOR UNKNOWN INDICATION
     Dosage: 0.4 ML, UNK
     Route: 065
     Dates: start: 202001, end: 20200129
  22. LIDOCAINE. [Suspect]
     Active Substance: LIDOCAINE
     Indication: EPIDURAL ANAESTHESIA
     Dosage: UNK
     Route: 065
     Dates: start: 20200117, end: 20200117
  23. FENTANYL. [Suspect]
     Active Substance: FENTANYL
     Dosage: 2 ML, UNK
     Route: 065
     Dates: start: 20200117, end: 20200117
  24. ROCURONIUM BROMIDE. [Suspect]
     Active Substance: ROCURONIUM BROMIDE
     Indication: PRODUCT USED FOR UNKNOWN INDICATION
     Dosage: UNK
     Route: 065
     Dates: start: 20200117, end: 20200117
  25. METRONIDAZOLE. [Suspect]
     Active Substance: METRONIDAZOLE
     Indication: PRODUCT USED FOR UNKNOWN INDICATION
     Dosage: 500 MG, TOTAL
     Route: 065
     Dates: start: 20200117, end: 20200117

REACTIONS (1)
  - Deafness neurosensory [Not Recovered/Not Resolved]

NARRATIVE: CASE EVENT DATE: 20200124
